FAERS Safety Report 6170664-3 (Version None)
Quarter: 2009Q2

REPORT INFORMATION
  Report Type: 
  Country: None (occurrence: None)
  Receive Date: 20090428
  Receipt Date: 20090413
  Transmission Date: 20091009
  Serious: Yes (Other)
  Sender: FDA-Public Use
  Company Number: US-GENENTECH-281474

PATIENT
  Age: 47 Year
  Sex: Female

DRUGS (3)
  1. RITUXAN [Suspect]
     Indication: THROMBOTIC THROMBOCYTOPENIC PURPURA
     Dosage: 375 MG/M2, UNK
     Route: 065
  2. PLASMA EXCHANGE [Concomitant]
     Indication: THROMBOTIC THROMBOCYTOPENIC PURPURA
  3. PREDNISONE TAB [Concomitant]
     Indication: THROMBOTIC THROMBOCYTOPENIC PURPURA

REACTIONS (1)
  - ENCEPHALITIS [None]
